FAERS Safety Report 5316655-3 (Version None)
Quarter: 2007Q2

REPORT INFORMATION
  Report Type: 
  Country: None (occurrence: None)
  Receive Date: 20070430
  Receipt Date: 20070430
  Transmission Date: 20071010
  Serious: Yes (Other)
  Sender: FDA-Public Use
  Company Number: None

PATIENT
  Age: 83 Year
  Sex: Female
  Weight: 72.5755 kg

DRUGS (2)
  1. LUCENTIS [Suspect]
     Indication: CHOROIDAL NEOVASCULARISATION
     Dosage: 0.5MG/0.05ML 1 INTRAOCULAR
     Route: 031
     Dates: start: 20061215, end: 20061215
  2. LUCENTIS [Suspect]
     Indication: CHOROIDAL NEOVASCULARISATION
     Dosage: 0.5MG/0.05ML 2 INTRAOCULA
     Route: 031
     Dates: start: 20070330, end: 20070330

REACTIONS (3)
  - LABORATORY TEST ABNORMAL [None]
  - MALAISE [None]
  - PARAESTHESIA [None]
